FAERS Safety Report 4281066-9 (Version None)
Quarter: 2004Q1

REPORT INFORMATION
  Report Type: 
  Country: None (occurrence: None)
  Receive Date: 20040123
  Receipt Date: 20030624
  Transmission Date: 20041129
  Serious: Yes (Disabling)
  Sender: FDA-Public Use
  Company Number: HQWYE776426JUN03

PATIENT
  Sex: Female

DRUGS (1)
  1. CORDARONE [Suspect]
     Dosage: 50 DOSES

REACTIONS (1)
  - BLINDNESS [None]
